FAERS Safety Report 21998020 (Version 6)
Quarter: 2023Q4

REPORT INFORMATION
  Report Type: Other
  Country: DE (occurrence: None)
  Receive Date: 20230216
  Receipt Date: 20231127
  Transmission Date: 20240110
  Serious: No
  Sender: FDA-Public Use
  Company Number: DE-ROCHE-3286723

PATIENT
  Age: 35 Year
  Sex: Female
  Weight: 72 kg

DRUGS (20)
  1. OCREVUS [Suspect]
     Active Substance: OCRELIZUMAB
     Indication: Relapsing multiple sclerosis
     Route: 042
     Dates: start: 20181203, end: 20181217
  2. OCREVUS [Suspect]
     Active Substance: OCRELIZUMAB
     Route: 042
     Dates: start: 20190618, end: 20220217
  3. OCREVUS [Suspect]
     Active Substance: OCRELIZUMAB
     Route: 042
     Dates: start: 20230223
  4. XYLOMETAZOLINE HYDROCHLORIDE [Concomitant]
     Active Substance: XYLOMETAZOLINE HYDROCHLORIDE
     Indication: Sinusitis
     Dosage: DEFINITION OF THE INTERVAL: AS REQUIRED
     Route: 045
     Dates: start: 20231111
  5. FERROUS GLYCINE SULFATE [Concomitant]
     Active Substance: FERROUS GLYCINE SULFATE
     Indication: Microcytic anaemia
     Route: 048
     Dates: start: 20231111
  6. COMIRNATY (TOZINAMERAN) [Concomitant]
     Active Substance: TOZINAMERAN
     Indication: COVID-19 prophylaxis
     Route: 030
     Dates: start: 20210520, end: 20210520
  7. COMIRNATY (TOZINAMERAN) [Concomitant]
     Active Substance: TOZINAMERAN
     Route: 030
     Dates: start: 20220711, end: 20220711
  8. COMIRNATY (TOZINAMERAN) [Concomitant]
     Active Substance: TOZINAMERAN
     Route: 030
     Dates: start: 20210701, end: 20210701
  9. CEFUROXIME [Concomitant]
     Active Substance: CEFUROXIME
     Indication: Pyrexia
     Route: 042
     Dates: start: 20231111, end: 20231115
  10. CEFUROXIME [Concomitant]
     Active Substance: CEFUROXIME
     Route: 048
     Dates: start: 20231116, end: 20231121
  11. METHYPRED [Concomitant]
     Indication: Premedication
     Route: 042
     Dates: start: 20181203, end: 20181217
  12. METHYPRED [Concomitant]
     Route: 042
     Dates: start: 20190618
  13. SPIKEVAX (ELASOMERAN) [Concomitant]
     Active Substance: ELASOMERAN
     Indication: COVID-19 prophylaxis
     Route: 030
     Dates: start: 20220109, end: 20220109
  14. CEFPODOXIME [Concomitant]
     Active Substance: CEFPODOXIME
     Indication: Sinusitis
     Route: 048
     Dates: start: 20220805
  15. ALBUTEROL [Concomitant]
     Active Substance: ALBUTEROL
     Indication: Influenza
     Dosage: DEFINITION OF THE INTERVAL: AS REQUIRED
     Route: 055
     Dates: start: 202212, end: 20230101
  16. DIMETHINDENE MALEATE [Concomitant]
     Active Substance: DIMETHINDENE MALEATE
     Indication: Premedication
     Route: 042
     Dates: start: 20181203, end: 20181217
  17. DIMETHINDENE MALEATE [Concomitant]
     Active Substance: DIMETHINDENE MALEATE
     Route: 042
     Dates: start: 20190618
  18. ESCITALOPRAM [Concomitant]
     Active Substance: ESCITALOPRAM OXALATE
     Indication: Depression
     Route: 048
     Dates: start: 20150629
  19. IVY EXTRACT [Concomitant]
     Active Substance: IVY EXTRACT
     Dosage: DEFINITION OF THE INTERVAL: AS REQUIRED
     Route: 048
     Dates: start: 20220724, end: 20220804
  20. CHOLECALCIFEROL [Concomitant]
     Active Substance: CHOLECALCIFEROL
     Indication: Vitamin D deficiency
     Route: 048
     Dates: start: 2015

REACTIONS (4)
  - Phobic postural vertigo [Recovered/Resolved]
  - Urinary tract infection [Recovered/Resolved]
  - Blood creatine phosphokinase increased [Unknown]
  - Influenza [Recovered/Resolved]

NARRATIVE: CASE EVENT DATE: 20221201
